FAERS Safety Report 25280737 (Version 2)
Quarter: 2025Q3

REPORT INFORMATION
  Report Type: Spontaneous
  Country: CA (occurrence: CA)
  Receive Date: 20250508
  Receipt Date: 20250924
  Transmission Date: 20251021
  Serious: Yes (Death, Life-Threatening, Hospitalization, Other)
  Sender: CELLTRION
  Company Number: CA-CELLTRION INC.-2023CA025716

PATIENT

DRUGS (18)
  1. TRUXIMA [Suspect]
     Active Substance: RITUXIMAB-ABBS
     Indication: Rheumatoid arthritis
     Route: 042
     Dates: start: 20231115
  2. TRUXIMA [Suspect]
     Active Substance: RITUXIMAB-ABBS
     Route: 042
     Dates: start: 20231115
  3. TRUXIMA [Suspect]
     Active Substance: RITUXIMAB-ABBS
  4. ACETAMINOPHEN [Concomitant]
     Active Substance: ACETAMINOPHEN
     Indication: Premedication
  5. ASPIRIN [Concomitant]
     Active Substance: ASPIRIN
  6. AMLODIPINE [Concomitant]
     Active Substance: AMLODIPINE BESYLATE
     Indication: Blood pressure measurement
  7. ASPIRIN [Concomitant]
     Active Substance: ASPIRIN
  8. DIPHENHYDRAMINE HYDROCHLORIDE [Concomitant]
     Active Substance: DIPHENHYDRAMINE HYDROCHLORIDE
     Indication: Premedication
  9. DIPHENHYDRAMINE HYDROCHLORIDE [Concomitant]
     Active Substance: DIPHENHYDRAMINE HYDROCHLORIDE
     Indication: Premedication
  10. FOLIC ACID [Concomitant]
     Active Substance: FOLIC ACID
  11. FOLIC ACID [Concomitant]
     Active Substance: FOLIC ACID
  12. FOLIC ACID [Concomitant]
     Active Substance: FOLIC ACID
  13. METHOTREXATE [Concomitant]
     Active Substance: METHOTREXATE
  14. METHYLPREDNISOLONE [Concomitant]
     Active Substance: METHYLPREDNISOLONE
     Indication: Premedication
  15. PANTOPRAZOLE [Concomitant]
     Active Substance: PANTOPRAZOLE
     Indication: Gastrooesophageal reflux disease
  16. ROSUVASTATIN [Concomitant]
     Active Substance: ROSUVASTATIN
  17. SYNTHROID [Concomitant]
     Active Substance: LEVOTHYROXINE SODIUM
     Indication: Thyroid disorder
  18. TELMISARTAN [Concomitant]
     Active Substance: TELMISARTAN
     Indication: Blood pressure measurement

REACTIONS (5)
  - Death [Fatal]
  - Erythema [Fatal]
  - Unevaluable event [Fatal]
  - COVID-19 [Fatal]
  - Influenza [Fatal]

NARRATIVE: CASE EVENT DATE: 20231115
